FAERS Safety Report 5189274-X (Version None)
Quarter: 2006Q4

REPORT INFORMATION
  Report Type: 
  Country: None (occurrence: None)
  Receive Date: 20061221
  Receipt Date: 20061010
  Transmission Date: 20070319
  Serious: No
  Sender: FDA-Public Use
  Company Number: US-AMGEN-US196447

PATIENT
  Sex: Female

DRUGS (2)
  1. ENBREL [Suspect]
     Indication: PSORIATIC ARTHROPATHY
     Route: 058
     Dates: start: 20060926
  2. ENBREL [Suspect]
     Indication: PSORIASIS

REACTIONS (3)
  - COLD SWEAT [None]
  - PERIPHERAL COLDNESS [None]
  - SYNCOPE [None]
